FAERS Safety Report 14790486 (Version 2)
Quarter: 2018Q2

REPORT INFORMATION
  Report Type: Spontaneous
  Country: DE (occurrence: DE)
  Receive Date: 20180423
  Receipt Date: 20180503
  Transmission Date: 20180711
  Serious: Yes (Disabling, Other)
  Sender: FDA-Public Use
  Company Number: DE-JNJFOC-20180419085

PATIENT
  Sex: Male

DRUGS (2)
  1. HALDOL [Suspect]
     Active Substance: HALOPERIDOL
     Indication: PRODUCT USED FOR UNKNOWN INDICATION
     Route: 065
     Dates: start: 201706
  2. XEPLION [Suspect]
     Active Substance: PALIPERIDONE PALMITATE
     Indication: PRODUCT USED FOR UNKNOWN INDICATION
     Route: 030
     Dates: start: 201301, end: 201607

REACTIONS (22)
  - Brain injury [Not Recovered/Not Resolved]
  - Hallucination, auditory [Unknown]
  - Abdominal pain upper [Unknown]
  - Mutism [Unknown]
  - Fatigue [Unknown]
  - Personality change [Unknown]
  - Restlessness [Unknown]
  - Irritability [Unknown]
  - Abnormal behaviour [Unknown]
  - Poor personal hygiene [Unknown]
  - Compulsions [Not Recovered/Not Resolved]
  - Angina pectoris [Not Recovered/Not Resolved]
  - Pain [Not Recovered/Not Resolved]
  - Middle insomnia [Unknown]
  - Sleep disorder [Unknown]
  - Thinking abnormal [Unknown]
  - Confusional state [Unknown]
  - Epistaxis [Unknown]
  - Condition aggravated [Unknown]
  - Tinnitus [Unknown]
  - Boredom [Unknown]
  - Nightmare [Unknown]

NARRATIVE: CASE EVENT DATE: 2013
